FAERS Safety Report 10175245 (Version 1)
Quarter: 2014Q2

REPORT INFORMATION
  Report Type: Spontaneous
  Country: US (occurrence: US)
  Receive Date: 20140515
  Receipt Date: 20140515
  Transmission Date: 20141212
  Serious: No
  Sender: FDA-Public Use
  Company Number: US-VIVUS-2014V1000119

PATIENT
  Age: 36 Year
  Sex: Female
  Weight: 111.68 kg

DRUGS (6)
  1. QSYMIA 3.75MG/23MG [Suspect]
     Indication: WEIGHT DECREASED
     Route: 048
     Dates: start: 20140225, end: 20140310
  2. QSYMIA 7.5MG/46MG [Suspect]
     Indication: WEIGHT DECREASED
     Route: 048
     Dates: start: 20140311
  3. SEMPREX-D [Concomitant]
     Indication: HYPERSENSITIVITY
     Route: 048
  4. NASONEX [Concomitant]
     Indication: HYPERSENSITIVITY
     Route: 045
     Dates: start: 2004
  5. SINGULAIR [Concomitant]
     Indication: HYPERSENSITIVITY
     Route: 048
     Dates: start: 2012
  6. ZYRTEC [Concomitant]
     Indication: HYPERSENSITIVITY
     Route: 048
     Dates: start: 2004

REACTIONS (1)
  - Dermatitis allergic [Not Recovered/Not Resolved]
